FAERS Safety Report 5626200-0 (Version None)
Quarter: 2008Q1

REPORT INFORMATION
  Report Type: 
  Country: None (occurrence: None)
  Receive Date: 20080214
  Receipt Date: 20080211
  Transmission Date: 20080703
  Serious: Yes (Hospitalization)
  Sender: FDA-Public Use
  Company Number: A0706913A

PATIENT
  Age: 47 Year
  Sex: Female
  Weight: 57.1 kg

DRUGS (2)
  1. LAPATINIB [Suspect]
     Dosage: 1250MG PER DAY
     Route: 048
     Dates: start: 20070107
  2. CAPECITABINE [Suspect]
     Dosage: 1150MG PER DAY
     Route: 048
     Dates: start: 20070107

REACTIONS (5)
  - DYSPNOEA [None]
  - ILL-DEFINED DISORDER [None]
  - INSOMNIA [None]
  - PNEUMONIA [None]
  - PRODUCTIVE COUGH [None]
